FAERS Safety Report 26051030 (Version 1)
Quarter: 2025Q4

REPORT INFORMATION
  Report Type: Report from Study
  Country: CA (occurrence: CA)
  Receive Date: 20251117
  Receipt Date: 20251117
  Transmission Date: 20260118
  Serious: Yes (Other)
  Sender: Alvotech
  Company Number: CA-JAMP PHARMA CORPORATION-2025-JAM-CA-01342

PATIENT
  Age: 64 Year
  Sex: Male

DRUGS (3)
  1. SIMLANDI [Suspect]
     Active Substance: ADALIMUMAB-RYVK
     Indication: Colitis ulcerative
     Dosage: 80 MG, EVERY 2 WEEKS
     Route: 065
     Dates: start: 20250703
  2. SIMLANDI [Suspect]
     Active Substance: ADALIMUMAB-RYVK
     Indication: Colitis ulcerative
     Dosage: 80 MG, EVERY 2 WEEKS
     Route: 065
  3. SIMLANDI [Suspect]
     Active Substance: ADALIMUMAB-RYVK
     Indication: Colitis ulcerative
     Dosage: 40 MG, EVERY 2 WEEKS
     Route: 058
     Dates: start: 20250703

REACTIONS (5)
  - Colitis [Not Recovered/Not Resolved]
  - Discomfort [Unknown]
  - Drug effect less than expected [Unknown]
  - Drug level below therapeutic [Unknown]
  - Off label use [Unknown]
